FAERS Safety Report 10425297 (Version 1)
Quarter: 2014Q3

REPORT INFORMATION
  Report Type: Spontaneous
  Country: JP (occurrence: JP)
  Receive Date: 20140902
  Receipt Date: 20140902
  Transmission Date: 20150326
  Serious: Yes (Other)
  Sender: FDA-Public Use
  Company Number: PHHY2012JP135453

PATIENT
  Sex: Male

DRUGS (1)
  1. GLIVEC [Suspect]
     Active Substance: IMATINIB MESYLATE
     Indication: CHRONIC MYELOID LEUKAEMIA
     Dosage: 300 MG, QD
     Route: 065

REACTIONS (6)
  - Weight decreased [Unknown]
  - Decreased appetite [Unknown]
  - Rash [Unknown]
  - Diabetes mellitus [Unknown]
  - Nasopharyngitis [Unknown]
  - Diarrhoea [Unknown]
